FAERS Safety Report 24937771 (Version 2)
Quarter: 2025Q1

REPORT INFORMATION
  Report Type: Spontaneous
  Country: IT (occurrence: IT)
  Receive Date: 20250206
  Receipt Date: 20250324
  Transmission Date: 20250409
  Serious: Yes (Hospitalization, Other)
  Sender: ALEXION PHARMACEUTICALS
  Company Number: IT-SA-2025SA033616

PATIENT
  Age: 34 Day

DRUGS (1)
  1. BEYFORTUS [Suspect]
     Active Substance: NIRSEVIMAB-ALIP
     Indication: Respiratory syncytial virus immunisation

REACTIONS (5)
  - Respiratory syncytial virus bronchiolitis [Unknown]
  - Rhinitis [Unknown]
  - Cough [Unknown]
  - Poor feeding infant [Unknown]
  - Drug ineffective [Unknown]
